FAERS Safety Report 20233071 (Version 1)
Quarter: 2021Q4

REPORT INFORMATION
  Report Type: Spontaneous
  Country: CN (occurrence: CN)
  Receive Date: 20211227
  Receipt Date: 20211227
  Transmission Date: 20220303
  Serious: Yes (Hospitalization)
  Sender: FDA-Public Use
  Company Number: CN-BAYER-2021A274321

PATIENT
  Age: 52 Year
  Sex: Male

DRUGS (2)
  1. STIVARGA [Suspect]
     Active Substance: REGORAFENIB
     Indication: Rectal cancer metastatic
     Dosage: 80 MG, QD
     Route: 048
     Dates: start: 20211123, end: 20211214
  2. NIVOLUMAB [Suspect]
     Active Substance: NIVOLUMAB
     Indication: Rectal cancer metastatic
     Dosage: 200 MG, QD
     Route: 041
     Dates: start: 20211123, end: 20211123

REACTIONS (2)
  - Immune-mediated thyroiditis [Unknown]
  - Off label use [None]

NARRATIVE: CASE EVENT DATE: 20211123
